FAERS Safety Report 4941643-6 (Version None)
Quarter: 2006Q1

REPORT INFORMATION
  Report Type: 
  Country: None (occurrence: None)
  Receive Date: 20060307
  Receipt Date: 20060227
  Transmission Date: 20060701
  Serious: Yes (Death)
  Sender: FDA-Public Use
  Company Number: 2006-139156-NL

PATIENT
  Age: 66 Year
  Sex: Female

DRUGS (11)
  1. MIRTAZAPINE [Suspect]
     Indication: DEPRESSION
     Dosage: 25 MG QD ORAL
     Route: 048
     Dates: start: 20051214, end: 20051215
  2. LACTULOSE [Concomitant]
  3. ACETAMINOPHEN [Concomitant]
  4. RISPERIDONE [Concomitant]
  5. VITAMIN B COMPLEX CAP [Concomitant]
  6. METOCLOPRAMIDE HYDROCHLORIDE [Concomitant]
  7. PEPTAC [Concomitant]
  8. FERROUS SULFATE TAB [Concomitant]
  9. THIAMINE HCL [Concomitant]
  10. OMEPRAZOLE [Concomitant]
  11. TRAMADOL HCL [Concomitant]

REACTIONS (4)
  - ARRHYTHMIA [None]
  - BRADYCARDIA [None]
  - CIRCULATORY COLLAPSE [None]
  - SUDDEN DEATH [None]
